FAERS Safety Report 8839163 (Version 2)
Quarter: 2012Q4

REPORT INFORMATION
  Report Type: 
  Country: US (occurrence: US)
  Receive Date: 20121015
  Receipt Date: 20121026
  Transmission Date: 20130627
  Serious: Yes (Hospitalization, Other)
  Sender: FDA-Public Use
  Company Number: US-009507513-1210USA002234

PATIENT
  Sex: Male

DRUGS (5)
  1. PEG-INTRON [Suspect]
     Indication: HEPATITIS C
     Dosage: UNK
     Dates: start: 20010105, end: 20011207
  2. PEG-INTRON [Suspect]
     Dosage: UNK
     Route: 048
     Dates: start: 20120925, end: 2012
  3. REBETOL [Suspect]
     Indication: HEPATITIS C
     Dosage: UNK
     Dates: start: 20010105, end: 20011207
  4. REBETOL [Suspect]
     Dosage: UNK
     Dates: start: 20120925, end: 2012
  5. TELAPREVIR [Suspect]
     Dosage: UNK
     Dates: start: 20120925

REACTIONS (3)
  - Myocardial infarction [Unknown]
  - Drug effect incomplete [Unknown]
  - Fatigue [Unknown]
